FAERS Safety Report 6117305-9 (Version None)
Quarter: 2009Q1

REPORT INFORMATION
  Report Type: 
  Country: None (occurrence: None)
  Receive Date: 20090314
  Receipt Date: 20090113
  Transmission Date: 20090719
  Serious: No
  Sender: FDA-Public Use
  Company Number: US-ABBOTT-09P-163-0497542-00

PATIENT
  Weight: 76.272 kg

DRUGS (3)
  1. HUMIRA [Suspect]
     Indication: COLITIS ULCERATIVE
     Dates: start: 20080901
  2. ISONIAZID [Concomitant]
     Indication: TUBERCULOSIS
     Dates: start: 20080601
  3. ASACOL [Concomitant]
     Indication: COLITIS ULCERATIVE
     Dates: start: 20040101

REACTIONS (3)
  - DIARRHOEA [None]
  - DYSGEUSIA [None]
  - INJECTION SITE PAIN [None]
